FAERS Safety Report 18909880 (Version 1)
Quarter: 2021Q1

REPORT INFORMATION
  Report Type: Spontaneous
  Country: US (occurrence: US)
  Receive Date: 20210217
  Receipt Date: 20210217
  Transmission Date: 20210420
  Serious: Yes (Hospitalization)
  Sender: FDA-Public Use
  Company Number: None

PATIENT
  Age: 54 Year
  Sex: Male

DRUGS (2)
  1. ASPIRIN (ASPIRIN 81MG TAB,CHEWABLE) [Suspect]
     Active Substance: ASPIRIN
     Indication: CEREBROVASCULAR ACCIDENT
     Dates: start: 20200924
  2. CLOPIDOGREL (CLOPIDOGREL BISULFATE 75MG TAB) [Suspect]
     Active Substance: CLOPIDOGREL BISULFATE
     Indication: CEREBROVASCULAR ACCIDENT
     Dates: start: 20200924

REACTIONS (1)
  - Haematuria [None]

NARRATIVE: CASE EVENT DATE: 20201123
